FAERS Safety Report 9863319 (Version 6)
Quarter: 2014Q2

REPORT INFORMATION
  Report Type: Spontaneous
  Country: US (occurrence: US)
  Receive Date: 20140203
  Receipt Date: 20140616
  Transmission Date: 20141212
  Serious: Yes (Hospitalization, Other)
  Sender: FDA-Public Use
  Company Number: US-PFIZER INC-2014030510

PATIENT
  Age: 81 Year
  Sex: Female
  Weight: 59.41 kg

DRUGS (2)
  1. LYRICA [Suspect]
     Indication: DIABETIC NEUROPATHY
     Dosage: 75 MG, 2X/DAY
     Route: 048
     Dates: end: 201402
  2. AMITIZA [Concomitant]
     Dosage: UNK

REACTIONS (8)
  - Diverticulitis [Unknown]
  - Chest discomfort [Unknown]
  - Headache [Unknown]
  - Feeling abnormal [Unknown]
  - Pain in extremity [Unknown]
  - Back pain [Unknown]
  - Dyskinesia [Unknown]
  - Communication disorder [Unknown]
